FAERS Safety Report 11824533 (Version 1)
Quarter: 2015Q4

REPORT INFORMATION
  Report Type: Report from Study
  Country: US (occurrence: US)
  Receive Date: 20151210
  Receipt Date: 20151210
  Transmission Date: 20160305
  Serious: Yes (Death, Hospitalization)
  Sender: FDA-Public Use
  Company Number: US-ACTELION-A-US2015-123162

PATIENT
  Age: 71 Year
  Sex: Male

DRUGS (7)
  1. RIOCIGUAT [Concomitant]
     Active Substance: RIOCIGUAT
  2. ADCIRCA [Concomitant]
     Active Substance: TADALAFIL
  3. OXYGEN. [Concomitant]
     Active Substance: OXYGEN
     Dosage: 10 L/MIN, UNK
  4. MACITENTAN [Suspect]
     Active Substance: MACITENTAN
     Indication: PULMONARY HYPERTENSION
     Dosage: 10 MG, QD
     Route: 048
     Dates: start: 20140217, end: 20151129
  5. TYVASO [Concomitant]
     Active Substance: TREPROSTINIL
  6. OXYGEN. [Concomitant]
     Active Substance: OXYGEN
     Dosage: 15 L/MIN, UNK
  7. REMODULIN [Concomitant]
     Active Substance: TREPROSTINIL

REACTIONS (3)
  - Photophobia [Unknown]
  - Dyspnoea [Fatal]
  - Productive cough [Unknown]
